FAERS Safety Report 4640845-6 (Version None)
Quarter: 2005Q2

REPORT INFORMATION
  Report Type: 
  Country: None (occurrence: None)
  Receive Date: 20050324
  Receipt Date: 20041206
  Transmission Date: 20051028
  Serious: Yes (Hospitalization)
  Sender: FDA-Public Use
  Company Number: 210906

PATIENT
  Age: 76 Year
  Sex: Female
  Weight: 64.4 kg

DRUGS (2)
  1. AVASTIN [Suspect]
     Indication: COLON CANCER METASTATIC
     Dosage: 350 MG, Q2W, INTRAVENOUS
     Route: 042
     Dates: start: 20040920
  2. LOVENOX [Concomitant]

REACTIONS (1)
  - CEREBRAL HAEMORRHAGE [None]
